FAERS Safety Report 5203688-0 (Version None)
Quarter: 2007Q1

REPORT INFORMATION
  Report Type: 
  Country: None (occurrence: None)
  Receive Date: 20070110
  Receipt Date: 20061229
  Transmission Date: 20070707
  Serious: Yes (Other)
  Sender: FDA-Public Use
  Company Number: US-MERCK-0612USA03672

PATIENT
  Age: 84 Year
  Sex: Female
  Weight: 63 kg

DRUGS (8)
  1. JANUVIA [Suspect]
     Indication: DIABETES MELLITUS
     Route: 048
     Dates: start: 20061127, end: 20061202
  2. DIOVAN [Concomitant]
     Route: 048
  3. COREG [Concomitant]
     Route: 048
  4. FORTAMET [Concomitant]
     Indication: DIABETES MELLITUS
     Route: 048
  5. ALEVE [Concomitant]
     Route: 065
  6. POTASSIUM (UNSPECIFIED) [Concomitant]
     Route: 065
  7. NITROLINGUAL [Concomitant]
     Route: 065
  8. LASIX [Concomitant]
     Route: 065

REACTIONS (6)
  - EYE SWELLING [None]
  - HYPERSENSITIVITY [None]
  - LIP SWELLING [None]
  - LOCAL SWELLING [None]
  - OEDEMA MOUTH [None]
  - SWELLING FACE [None]
